FAERS Safety Report 6150963-1 (Version None)
Quarter: 2009Q2

REPORT INFORMATION
  Report Type: 
  Country: None (occurrence: None)
  Receive Date: 20090410
  Receipt Date: 20090331
  Transmission Date: 20091009
  Serious: Yes (Other)
  Sender: FDA-Public Use
  Company Number: US-RANBAXY-2009RR-23203

PATIENT
  Age: 19 Month
  Sex: Male

DRUGS (9)
  1. NEVIRAPINE [Suspect]
     Indication: HIV TEST POSITIVE
     Dosage: UNK
  2. ZIDOVUDINE [Suspect]
     Indication: HIV TEST POSITIVE
  3. RIFAMPICIN [Suspect]
     Indication: TUBERCULOSIS
  4. ISONIAZID [Suspect]
     Indication: TUBERCULOSIS
  5. PYRAZINAMIDE [Suspect]
     Indication: TUBERCULOSIS
  6. STAVUDINE [Suspect]
     Indication: HIV TEST POSITIVE
  7. LAMIVUDINE [Suspect]
     Indication: HIV TEST POSITIVE
  8. RITONAVIR [Suspect]
     Indication: HIV TEST POSITIVE
  9. LOPINAVIR [Suspect]
     Indication: HIV TEST POSITIVE

REACTIONS (8)
  - DIARRHOEA [None]
  - DRUG RESISTANCE [None]
  - GENE MUTATION [None]
  - GENERAL PHYSICAL HEALTH DETERIORATION [None]
  - MATERNAL DRUGS AFFECTING FOETUS [None]
  - VOMITING [None]
  - WEIGHT DECREASED [None]
  - WEIGHT GAIN POOR [None]
